FAERS Safety Report 16906983 (Version 1)
Quarter: 2019Q4

REPORT INFORMATION
  Report Type: Spontaneous
  Country: FR (occurrence: FR)
  Receive Date: 20191011
  Receipt Date: 20191011
  Transmission Date: 20200122
  Serious: Yes (Hospitalization)
  Sender: FDA-Public Use
  Company Number: FR-ACCORD-156911

PATIENT
  Age: 56 Year
  Sex: Male
  Weight: 100 kg

DRUGS (2)
  1. CARBOPLATIN ACCORD [Suspect]
     Active Substance: CARBOPLATIN
     Indication: SQUAMOUS CELL CARCINOMA OF LUNG
     Dosage: 10 MG/ML, SOLUTION POUR PERFUSION
     Route: 042
     Dates: start: 20190816, end: 20190823
  2. PACLITAXEL ACCORD [Suspect]
     Active Substance: PACLITAXEL
     Indication: SQUAMOUS CELL CARCINOMA OF LUNG
     Dosage: 6 MG/ML, CONCENTRATE FOR SOLUTION FOR INFUSION
     Route: 042
     Dates: start: 20190816, end: 20190823

REACTIONS (1)
  - Anaphylactic shock [Recovered/Resolved]

NARRATIVE: CASE EVENT DATE: 20190823
